FAERS Safety Report 25801340 (Version 5)
Quarter: 2025Q4

REPORT INFORMATION
  Report Type: Report from Study
  Country: EU (occurrence: EU)
  Receive Date: 20250915
  Receipt Date: 20251215
  Transmission Date: 20260118
  Serious: Yes (Death, Life-Threatening, Hospitalization, Other)
  Sender: TAKEDA
  Company Number: EU-TAKEDA-2025TUS075537

PATIENT
  Sex: Female
  Weight: 64 kg

DRUGS (1)
  1. FRUQUINTINIB [Suspect]
     Active Substance: FRUQUINTINIB
     Indication: Colorectal cancer metastatic
     Dosage: 5 MILLIGRAM
     Dates: start: 20250714, end: 20250803

REACTIONS (7)
  - Death [Fatal]
  - Acute kidney injury [Unknown]
  - Dehydration [Unknown]
  - Infection [Unknown]
  - Pulmonary sepsis [Unknown]
  - Escherichia bacteraemia [Unknown]
  - Sciatica [Not Recovered/Not Resolved]

NARRATIVE: CASE EVENT DATE: 20250727
